FAERS Safety Report 7971991-7 (Version None)
Quarter: 2011Q4

REPORT INFORMATION
  Report Type: 
  Country: None (occurrence: None)
  Receive Date: 20111212
  Receipt Date: 20111207
  Transmission Date: 20120403
  Serious: Yes (Death)
  Sender: FDA-Public Use
  Company Number: BR-ASTRAZENECA-2011SE74009

PATIENT
  Age: 18 Year
  Sex: Female

DRUGS (10)
  1. CYCLOPHOSPHAMIDE [Concomitant]
     Dosage: 750 MG/M2
     Route: 042
  2. METHYLPREDNISOLONE [Concomitant]
  3. TRIMETHOPRIM + SULFAMETHOXAZOLE [Suspect]
     Indication: SEPSIS
  4. MEROPENEM [Suspect]
     Indication: PNEUMONIA BACTERIAL
     Route: 042
  5. LINEZOLID [Suspect]
     Indication: PNEUMONIA BACTERIAL
  6. LINEZOLID [Suspect]
     Indication: SEPSIS
  7. MEROPENEM [Suspect]
     Indication: SEPSIS
     Route: 042
  8. VANCOMYCIN [Suspect]
     Indication: PNEUMONIA BACTERIAL
  9. VANCOMYCIN [Suspect]
     Indication: SEPSIS
  10. TRIMETHOPRIM + SULFAMETHOXAZOLE [Suspect]
     Indication: PNEUMONIA BACTERIAL

REACTIONS (1)
  - STEVENS-JOHNSON SYNDROME [None]
